FAERS Safety Report 6118267-0 (Version None)
Quarter: 2009Q1

REPORT INFORMATION
  Report Type: 
  Country: None (occurrence: None)
  Receive Date: 20090314
  Receipt Date: 20090211
  Transmission Date: 20090719
  Serious: No
  Sender: FDA-Public Use
  Company Number: US-ABBOTT-09P-163-0503266-00

PATIENT
  Sex: Female
  Weight: 108.05 kg

DRUGS (3)
  1. HUMIRA [Suspect]
     Indication: RHEUMATOID ARTHRITIS
     Dates: start: 20081217
  2. VERAPAMIL [Concomitant]
     Indication: BLOOD PRESSURE
     Dates: start: 20090210
  3. VERAPAMIL [Concomitant]
     Dates: start: 20090205, end: 20090210

REACTIONS (4)
  - BLOOD PRESSURE INCREASED [None]
  - DIZZINESS [None]
  - HEADACHE [None]
  - NAUSEA [None]
